FAERS Safety Report 18582505 (Version 2)
Quarter: 2021Q3

REPORT INFORMATION
  Report Type: Report from Study
  Country: US (occurrence: US)
  Receive Date: 20201205
  Receipt Date: 20210922
  Transmission Date: 20211014
  Serious: No
  Sender: FDA-Public Use
  Company Number: US-TAKEDA-2020TUS053216

PATIENT
  Sex: Female
  Weight: 67.57 kg

DRUGS (9)
  1. LMX4 [Concomitant]
     Active Substance: LIDOCAINE
  2. DIPHENHYDRAMINE. [Concomitant]
     Active Substance: DIPHENHYDRAMINE
  3. ACETAMINOPHEN. [Concomitant]
     Active Substance: ACETAMINOPHEN
  4. EPINEPHRINE. [Concomitant]
     Active Substance: EPINEPHRINE
  5. VITAMINS NOS [Concomitant]
     Active Substance: VITAMINS
  6. CUVITRU [Suspect]
     Active Substance: HUMAN IMMUNOGLOBULIN G
     Indication: SELECTIVE IGG SUBCLASS DEFICIENCY
     Dosage: 10 GRAM, 1/WEEK
     Route: 058
     Dates: start: 20200924
  7. CUVITRU [Suspect]
     Active Substance: HUMAN IMMUNOGLOBULIN G
     Indication: IMMUNODEFICIENCY
  8. XHANCE [Concomitant]
     Active Substance: FLUTICASONE PROPIONATE
  9. COLLAGEN [Concomitant]
     Active Substance: COLLAGEN

REACTIONS (2)
  - Infusion site erythema [Unknown]
  - Product dose omission issue [Unknown]
